FAERS Safety Report 10723566 (Version 1)
Quarter: 2015Q1

REPORT INFORMATION
  Report Type: Spontaneous
  Country: US (occurrence: None)
  Receive Date: 20150116
  Receipt Date: 20150116
  Transmission Date: 20150721
  Serious: Yes (Death, Hospitalization)
  Sender: FDA-Public Use
  Company Number: None

PATIENT
  Age: 71 Year
  Sex: Female
  Weight: 54 kg

DRUGS (1)
  1. CISPLATIN. [Suspect]
     Active Substance: CISPLATIN
     Dates: end: 20141210

REACTIONS (7)
  - Decreased appetite [None]
  - Respiratory arrest [None]
  - Weight decreased [None]
  - Nausea [None]
  - Dyspnoea [None]
  - Organ failure [None]
  - General physical health deterioration [None]

NARRATIVE: CASE EVENT DATE: 20141216
